FAERS Safety Report 4808521-4 (Version None)
Quarter: 2005Q4

REPORT INFORMATION
  Report Type: 
  Country: None (occurrence: None)
  Receive Date: 20051025
  Receipt Date: 20051014
  Transmission Date: 20060501
  Serious: Yes (Hospitalization)
  Sender: FDA-Public Use
  Company Number: TH-JNJFOC-20051003099

PATIENT
  Age: 21 Year
  Sex: Male
  Weight: 95 kg

DRUGS (2)
  1. CONCERTA [Suspect]
     Route: 048
  2. EFFEXOR [Concomitant]
     Indication: MAJOR DEPRESSION

REACTIONS (5)
  - AGITATION [None]
  - HEADACHE [None]
  - IRRITABILITY [None]
  - NAUSEA [None]
  - PALPITATIONS [None]
